FAERS Safety Report 23938480 (Version 3)
Quarter: 2024Q3

REPORT INFORMATION
  Report Type: Report from Study
  Country: US (occurrence: US)
  Receive Date: 20240604
  Receipt Date: 20240904
  Transmission Date: 20241017
  Serious: Yes (Hospitalization)
  Sender: TAKEDA
  Company Number: US-TAKEDA-2024TUS031408

PATIENT
  Sex: Female

DRUGS (8)
  1. TEDUGLUTIDE [Suspect]
     Active Substance: TEDUGLUTIDE
     Indication: Product used for unknown indication
     Dosage: UNK UNK, QD
     Route: 050
     Dates: start: 20221121
  2. TEDUGLUTIDE [Suspect]
     Active Substance: TEDUGLUTIDE
     Indication: Product used for unknown indication
     Dosage: UNK UNK, QD
     Route: 050
     Dates: start: 20221121
  3. TEDUGLUTIDE [Suspect]
     Active Substance: TEDUGLUTIDE
     Indication: Product used for unknown indication
     Dosage: UNK UNK, QD
     Route: 050
     Dates: start: 20221121
  4. TEDUGLUTIDE [Suspect]
     Active Substance: TEDUGLUTIDE
     Indication: Product used for unknown indication
     Dosage: UNK UNK, QD
     Route: 050
     Dates: start: 20221121
  5. TEDUGLUTIDE [Suspect]
     Active Substance: TEDUGLUTIDE
     Dosage: UNK, UNK, QD
     Route: 050
     Dates: start: 20221216
  6. TEDUGLUTIDE [Suspect]
     Active Substance: TEDUGLUTIDE
     Dosage: UNK, UNK, QD
     Route: 050
     Dates: start: 20221216
  7. TEDUGLUTIDE [Suspect]
     Active Substance: TEDUGLUTIDE
     Dosage: UNK, UNK, QD
     Route: 050
     Dates: start: 20221216
  8. TEDUGLUTIDE [Suspect]
     Active Substance: TEDUGLUTIDE
     Dosage: UNK, UNK, QD
     Route: 050
     Dates: start: 20221216

REACTIONS (4)
  - Obstruction [Recovered/Resolved]
  - Herpes zoster [Recovering/Resolving]
  - COVID-19 [Recovering/Resolving]
  - Bronchitis [Unknown]
